FAERS Safety Report 9524094 (Version 1)
Quarter: 2013Q3

REPORT INFORMATION
  Report Type: Spontaneous
  Country: US (occurrence: None)
  Receive Date: 20130912
  Receipt Date: 20130912
  Transmission Date: 20140515
  Serious: Yes (Other)
  Sender: FDA-Public Use
  Company Number: None

PATIENT
  Age: 64 Year
  Sex: Female
  Weight: 73.48 kg

DRUGS (2)
  1. PARADIGM PUMP [Suspect]
  2. INSULIN [Suspect]

REACTIONS (2)
  - Product quality issue [None]
  - Blood glucose increased [None]
